FAERS Safety Report 18726791 (Version 10)
Quarter: 2024Q2

REPORT INFORMATION
  Report Type: Spontaneous
  Country: US (occurrence: US)
  Receive Date: 20210111
  Receipt Date: 20240410
  Transmission Date: 20240716
  Serious: Yes (Hospitalization, Other)
  Sender: FDA-Public Use
  Company Number: US-PFIZER INC-2020168413

PATIENT
  Age: 67 Year
  Sex: Female
  Weight: 78.02 kg

DRUGS (4)
  1. IBRANCE [Suspect]
     Active Substance: PALBOCICLIB
     Indication: Breast cancer female
     Dosage: 125 MG, CYCLIC (DAYS 1-14 OF A 21 CYCLE/DAYS 1-14 WITH A 7 DAY BREAK THEN RESUME)
     Route: 048
     Dates: start: 200811
  2. IBRANCE [Suspect]
     Active Substance: PALBOCICLIB
     Indication: Breast cancer female
     Dosage: 100 MG
  3. LETROZOLE [Suspect]
     Active Substance: LETROZOLE
     Indication: Breast cancer
     Dosage: 2.5 MG, 1X/DAY
     Dates: start: 200811
  4. ASPIRIN [Suspect]
     Active Substance: ASPIRIN
     Indication: Cardiac disorder
     Dosage: 81 MG
     Dates: start: 200811

REACTIONS (23)
  - Thrombocytopenic purpura [Unknown]
  - Pulmonary embolism [Recovered/Resolved]
  - Carcinoembryonic antigen increased [Unknown]
  - Shoulder fracture [Unknown]
  - Fall [Unknown]
  - Knee arthroplasty [Unknown]
  - Chronic obstructive pulmonary disease [Recovered/Resolved]
  - Neutropenia [Unknown]
  - Respiratory syncytial virus infection [Recovered/Resolved]
  - Leukopenia [Unknown]
  - Alopecia [Unknown]
  - Anxiety [Unknown]
  - Depressed mood [Unknown]
  - Condition aggravated [Unknown]
  - Pain in extremity [Unknown]
  - Arthralgia [Unknown]
  - Back pain [Recovering/Resolving]
  - Restlessness [Recovering/Resolving]
  - Intention tremor [Unknown]
  - Hypotension [Unknown]
  - Fat necrosis [Unknown]
  - Dry eye [Unknown]
  - Pulmonary mass [Unknown]
